FAERS Safety Report 6936994-X (Version None)
Quarter: 2010Q3

REPORT INFORMATION
  Report Type: 
  Country: None (occurrence: None)
  Receive Date: 20100823
  Receipt Date: 20100809
  Transmission Date: 20110219
  Serious: Yes (Hospitalization, Other)
  Sender: FDA-Public Use
  Company Number: PHHY2010BR53184

PATIENT
  Sex: Female

DRUGS (2)
  1. DIOVAN HCT [Suspect]
     Dosage: 1 TABLET DAILY(160/12.5 MG)
  2. DIOVAN HCT [Suspect]
     Dosage: 1 TABLET DAILY(320/12.5 MG)

REACTIONS (3)
  - DIZZINESS [None]
  - DYSPNOEA [None]
  - HYPERTENSION [None]
